FAERS Safety Report 9269467 (Version 1)
Quarter: 2013Q2

REPORT INFORMATION
  Report Type: Spontaneous
  Country: FR (occurrence: FR)
  Receive Date: 20130503
  Receipt Date: 20130503
  Transmission Date: 20140414
  Serious: Yes (Death, Hospitalization)
  Sender: FDA-Public Use
  Company Number: FR-PFIZER INC-2013136333

PATIENT
  Age: 80 Year
  Sex: Male

DRUGS (12)
  1. AMIODARONE HCL [Suspect]
     Indication: ATRIAL FIBRILLATION
     Dosage: 200 MG, DAILY
     Route: 065
     Dates: start: 20121125, end: 20121222
  2. DEPAKINE [Suspect]
     Dosage: 500 MG, TWICE A DAY
     Route: 042
     Dates: start: 20121218, end: 20121221
  3. DEPAKINE [Suspect]
     Dosage: UNK
     Route: 048
     Dates: start: 20121221, end: 20121222
  4. TAHOR [Concomitant]
     Dosage: UNK
  5. ALDACTONE [Concomitant]
     Dosage: UNK
  6. ALPRAZOLAM [Concomitant]
     Dosage: UNK
  7. CARDENSIEL [Concomitant]
     Dosage: UNK
  8. INEXIUM [Concomitant]
     Dosage: UNK
  9. KARDEGIC [Concomitant]
     Dosage: UNK
  10. LASILIX [Concomitant]
     Dosage: UNK
  11. VENLAFAXINE [Concomitant]
     Dosage: UNK
  12. XATRAL [Concomitant]
     Dosage: UNK

REACTIONS (4)
  - Influenza [Fatal]
  - Hepatitis [Recovered/Resolved]
  - Haemorrhage intracranial [Unknown]
  - Bronchopneumopathy [Unknown]
